FAERS Safety Report 18196410 (Version 2)
Quarter: 2021Q1

REPORT INFORMATION
  Report Type: Report from Study
  Country: BR (occurrence: BR)
  Receive Date: 20200826
  Receipt Date: 20210117
  Transmission Date: 20210419
  Serious: Yes (Hospitalization, Other)
  Sender: FDA-Public Use
  Company Number: BR-UCBSA-2020032545

PATIENT
  Age: 41 Year
  Sex: Female
  Weight: 70 kg

DRUGS (6)
  1. CERTOLIZUMAB PEGOL ASP [Suspect]
     Active Substance: CERTOLIZUMAB PEGOL
     Indication: ANKYLOSING SPONDYLITIS
     Dosage: UNK
     Route: 058
     Dates: start: 2018
  2. TRAMADOL. [Concomitant]
     Active Substance: TRAMADOL
     Indication: PAIN
     Route: 048
  3. PACO [Concomitant]
     Active Substance: ACETAMINOPHEN\CODEINE PHOSPHATE
     Indication: PAIN
     Dosage: 500 MILLIGRAM, UNK
     Route: 048
  4. DUAL [DULOXETINE HYDROCHLORIDE] [Concomitant]
     Indication: PAIN
     Dosage: 60 MILLIGRAM, UNK
     Route: 048
  5. DONAREN [Concomitant]
     Active Substance: TRAZODONE HYDROCHLORIDE
     Indication: PAIN
  6. CERTOLIZUMAB PEGOL ASP [Suspect]
     Active Substance: CERTOLIZUMAB PEGOL
     Dosage: 400 MILLIGRAM, EV 4 WEEKS
     Route: 058
     Dates: start: 201907, end: 20200116

REACTIONS (20)
  - Mass [Unknown]
  - Injection site erythema [Not Recovered/Not Resolved]
  - Abdominal discomfort [Unknown]
  - Skin laceration [Unknown]
  - Abdominal pain [Unknown]
  - Tuberculosis [Recovering/Resolving]
  - Injection site swelling [Recovered/Resolved]
  - Injection site pain [Unknown]
  - Inability to afford medication [Unknown]
  - Necrosis [Unknown]
  - Arthralgia [Not Recovered/Not Resolved]
  - Abdominal distension [Unknown]
  - Therapy interrupted [Unknown]
  - Therapy cessation [Unknown]
  - Lymphadenopathy [Unknown]
  - Depression [Not Recovered/Not Resolved]
  - Bedridden [Not Recovered/Not Resolved]
  - Peripheral swelling [Not Recovered/Not Resolved]
  - Weight decreased [Not Recovered/Not Resolved]
  - Injection site discomfort [Unknown]

NARRATIVE: CASE EVENT DATE: 201907
